FAERS Safety Report 6288845-7 (Version None)
Quarter: 2009Q3

REPORT INFORMATION
  Report Type: 
  Country: None (occurrence: None)
  Receive Date: 20090729
  Receipt Date: 20090723
  Transmission Date: 20100115
  Serious: Yes (Death, Life-Threatening, Hospitalization)
  Sender: FDA-Public Use
  Company Number: FR-PFIZER INC-2009244527

PATIENT
  Age: 17 Year

DRUGS (23)
  1. FOSPHENYTOIN SODIUM [Suspect]
     Indication: EPILEPSY
     Dosage: UNK
     Route: 042
     Dates: start: 20081209, end: 20081201
  2. PANTOPRAZOLE SODIUM [Suspect]
     Indication: PROPHYLAXIS AGAINST GASTROINTESTINAL ULCER
     Dosage: UNK
     Route: 042
     Dates: start: 20081201
  3. GARDENAL ^AVENTIS^ [Suspect]
     Dosage: UNK
     Route: 042
     Dates: start: 20081201
  4. TAZOCILLINE [Suspect]
     Indication: ESCHERICHIA INFECTION
     Dosage: UNK
     Dates: start: 20081225
  5. VANCOMYCIN [Suspect]
     Indication: STAPHYLOCOCCAL INFECTION
     Dosage: UNK
     Dates: start: 20081201
  6. DIPRIVAN [Suspect]
     Indication: SEDATION
     Dosage: UNK
     Route: 042
     Dates: start: 20081218
  7. PENTOTHAL [Suspect]
     Indication: SEDATION
     Dosage: UNK
     Dates: start: 20081208
  8. DEPAKENE [Suspect]
     Indication: EPILEPSY
     Dosage: UNK
     Route: 042
     Dates: start: 20081226
  9. KEPPRA [Suspect]
     Indication: EPILEPSY
     Dosage: UNK
     Route: 042
     Dates: start: 20081206
  10. AMIKLIN [Suspect]
     Indication: ESCHERICHIA INFECTION
     Dosage: UNK
     Dates: start: 20081225
  11. URBANYL [Suspect]
     Indication: EPILEPSY
     Dosage: UNK
     Route: 042
     Dates: start: 20081215
  12. ENDOXAN [Suspect]
     Indication: SICCA SYNDROME
     Dosage: UNK
     Dates: start: 20081209
  13. SUFENTA PRESERVATIVE FREE [Suspect]
     Indication: SEDATION
     Dosage: UNK
     Route: 042
     Dates: start: 20081129, end: 20081225
  14. MIDAZOLAM [Concomitant]
     Dosage: UNK
     Route: 042
     Dates: start: 20081128, end: 20081209
  15. DUPHALAC [Concomitant]
  16. SOLU-MEDROL [Concomitant]
     Dosage: UNK
     Route: 042
     Dates: start: 20081219, end: 20081221
  17. NEUPOGEN [Concomitant]
     Dosage: UNK
     Route: 042
     Dates: start: 20081201
  18. PARACETAMOL [Concomitant]
  19. NEOSTIGMINE BROMIDE [Concomitant]
     Dosage: UNK
     Dates: start: 20081101
  20. NORADRENALINE [Concomitant]
  21. ACICLOVIR [Concomitant]
     Dosage: UNK
     Dates: start: 20081101
  22. CLAFORAN [Concomitant]
     Dosage: UNK
     Dates: start: 20081101
  23. CYCLOPHOSPHAMIDE [Concomitant]
     Dosage: 750 MG, UNK
     Dates: start: 20081211

REACTIONS (18)
  - ACUTE RESPIRATORY FAILURE [None]
  - AGRANULOCYTOSIS [None]
  - COMA [None]
  - CONVULSION [None]
  - DISTURBANCE IN ATTENTION [None]
  - ENCEPHALITIS [None]
  - ESCHERICHIA BACTERAEMIA [None]
  - HAEMOGLOBIN DECREASED [None]
  - HYPERAMMONAEMIA [None]
  - HYPERCAPNIA [None]
  - MACROPHAGE ACTIVATION [None]
  - MEAN CELL VOLUME DECREASED [None]
  - PANCYTOPENIA [None]
  - PYREXIA [None]
  - RENAL FAILURE ACUTE [None]
  - SEPTIC SHOCK [None]
  - SJOGREN'S SYNDROME [None]
  - STATUS EPILEPTICUS [None]
